FAERS Safety Report 17761942 (Version 1)
Quarter: 2020Q2

REPORT INFORMATION
  Report Type: Report from Study
  Country: US (occurrence: US)
  Receive Date: 20200508
  Receipt Date: 20200508
  Transmission Date: 20200714
  Serious: Yes (Other)
  Sender: FDA-Public Use
  Company Number: US-GILEAD-2020-0464646

PATIENT
  Sex: Female

DRUGS (4)
  1. TOPIRAMATE. [Concomitant]
     Active Substance: TOPIRAMATE
  2. VIMPAT [Concomitant]
     Active Substance: LACOSAMIDE
  3. TOBI [Concomitant]
     Active Substance: TOBRAMYCIN
  4. AZTREONAM LYSINE [Suspect]
     Active Substance: AZTREONAM LYSINE
     Indication: PRODUCT USED FOR UNKNOWN INDICATION
     Dosage: UNK
     Route: 055

REACTIONS (8)
  - Brain injury [Not Recovered/Not Resolved]
  - Bronchial secretion retention [Not Recovered/Not Resolved]
  - Laryngomalacia [Not Recovered/Not Resolved]
  - Tracheomalacia [Not Recovered/Not Resolved]
  - Schizencephaly [Not Recovered/Not Resolved]
  - Colostomy [Not Recovered/Not Resolved]
  - Patent ductus arteriosus [Unknown]
  - Adenotonsillectomy [Unknown]

NARRATIVE: CASE EVENT DATE: 20171117
